FAERS Safety Report 23087011 (Version 3)
Quarter: 2024Q1

REPORT INFORMATION
  Report Type: Spontaneous
  Country: US (occurrence: US)
  Receive Date: 20231020
  Receipt Date: 20240104
  Transmission Date: 20240410
  Serious: Yes (Hospitalization, Other)
  Sender: FDA-Public Use
  Company Number: US-ZENPEP LLC-2023AIMT01109

PATIENT

DRUGS (3)
  1. ZENPEP [Suspect]
     Active Substance: PANCRELIPASE AMYLASE\PANCRELIPASE LIPASE\PANCRELIPASE PROTEASE
     Indication: Pancreatic failure
     Dosage: 10 000 USP UNITS, THROUGH THE G TUBE, 2 WITH EACK MEAL AND 1 WITH SNACK
     Route: 048
     Dates: start: 20200418
  2. ZENPEP [Suspect]
     Active Substance: PANCRELIPASE AMYLASE\PANCRELIPASE LIPASE\PANCRELIPASE PROTEASE
     Dosage: 10 000 USP UNITS, ONCE, LAST DOSE PRIOR TO EVENTS
     Route: 048
  3. ASPIRIN [Concomitant]
     Active Substance: ASPIRIN
     Indication: Atrial fibrillation

REACTIONS (8)
  - Fall [Not Recovered/Not Resolved]
  - Rib fracture [Unknown]
  - Clavicle fracture [Unknown]
  - Gastrointestinal tube insertion [Not Recovered/Not Resolved]
  - Complication associated with device [Unknown]
  - Neoplasm malignant [Unknown]
  - Weight decreased [Not Recovered/Not Resolved]
  - Diarrhoea [Recovered/Resolved with Sequelae]

NARRATIVE: CASE EVENT DATE: 20230101
